FAERS Safety Report 5394735-4 (Version None)
Quarter: 2007Q3

REPORT INFORMATION
  Report Type: 
  Country: None (occurrence: None)
  Receive Date: 20070723
  Receipt Date: 20070712
  Transmission Date: 20080115
  Serious: Yes (Hospitalization, Other)
  Sender: FDA-Public Use
  Company Number: US-PFIZER INC-2007044645

PATIENT
  Sex: Male
  Weight: 104.3 kg

DRUGS (1)
  1. CELEBREX [Suspect]
     Indication: ARTHRITIS
     Route: 048

REACTIONS (6)
  - ANXIETY [None]
  - ATRIAL FIBRILLATION [None]
  - CLAUSTROPHOBIA [None]
  - DEPRESSION [None]
  - MYOCARDIAL INFARCTION [None]
  - THROMBOSIS [None]
